FAERS Safety Report 7638337-5 (Version None)
Quarter: 2011Q3

REPORT INFORMATION
  Report Type: 
  Country: None (occurrence: None)
  Receive Date: 20110727
  Receipt Date: 20110721
  Transmission Date: 20111222
  Serious: Yes (Hospitalization)
  Sender: FDA-Public Use
  Company Number: US-B.I. PHARMACEUTICALS,INC./RIDGEFIELD-2011-BP-14573BP

PATIENT
  Sex: Male
  Weight: 110.67 kg

DRUGS (11)
  1. PRADAXA [Suspect]
     Indication: ATRIAL FIBRILLATION
     Dosage: 300 MG
     Route: 048
     Dates: start: 20110412, end: 20110426
  2. METOPROLOL TARTRATE [Concomitant]
     Dosage: 100 MG
     Route: 048
     Dates: start: 20110408
  3. SPIRONOLACTONE [Concomitant]
     Dosage: 12.5 MG
     Route: 048
  4. ASPIRIN [Concomitant]
     Dates: start: 20110408
  5. IBUPROFEN [Concomitant]
  6. SYNTHROID [Concomitant]
     Dosage: 200 MCG
     Route: 048
  7. AMIODARONE HCL [Concomitant]
     Dosage: 400 MG
     Route: 048
     Dates: start: 20110422
  8. DILTIAZEM [Concomitant]
     Dates: start: 20110408
  9. SUCRALFATE [Concomitant]
  10. LISINOPRIL [Concomitant]
     Dosage: 20 MG
     Route: 048
  11. SIMVASTATIN [Concomitant]
     Dosage: 20 MG
     Route: 048

REACTIONS (3)
  - PERICARDIAL EFFUSION [None]
  - CARDIAC TAMPONADE [None]
  - SYNCOPE [None]
